FAERS Safety Report 15497965 (Version 1)
Quarter: 2018Q4

REPORT INFORMATION
  Report Type: Report from Study
  Country: None (occurrence: BR)
  Receive Date: 20181015
  Receipt Date: 20181015
  Transmission Date: 20190205
  Serious: Yes (Hospitalization, Other)
  Sender: FDA-Public Use
  Company Number: BR-ABBVIE-18K-020-2292804-00

PATIENT
  Age: 72 Year
  Sex: Female
  Weight: 55 kg

DRUGS (14)
  1. OMEPRAZOLE. [Concomitant]
     Active Substance: OMEPRAZOLE
     Indication: PROPHYLAXIS
  2. CLONAZEPAM. [Concomitant]
     Active Substance: CLONAZEPAM
     Indication: SLEEP DISORDER THERAPY
  3. PREDNISONE. [Concomitant]
     Active Substance: PREDNISONE
     Indication: ARTHRITIS
  4. PREGABALIN. [Concomitant]
     Active Substance: PREGABALIN
     Indication: ARTHRITIS
  5. PRELONE [Concomitant]
     Active Substance: PREDNISOLONE
     Indication: ARTHRITIS
  6. PARATRAM [Concomitant]
     Active Substance: ACETAMINOPHEN\TRAMADOL HYDROCHLORIDE
     Indication: PAIN
  7. ENALAPRIL [Concomitant]
     Active Substance: ENALAPRIL
     Indication: HYPERTENSION
  8. PROTOS [Concomitant]
     Indication: OSTEOPOROSIS
  9. HUMIRA [Suspect]
     Active Substance: ADALIMUMAB
     Indication: RHEUMATOID ARTHRITIS
     Route: 058
     Dates: start: 20100101
  10. PREDNISONE. [Concomitant]
     Active Substance: PREDNISONE
     Indication: PAIN
  11. PRELONE [Concomitant]
     Active Substance: PREDNISOLONE
     Indication: PAIN
  12. OSTEONUTRI [Concomitant]
     Indication: OSTEOPOROSIS
  13. PREGABALIN. [Concomitant]
     Active Substance: PREGABALIN
     Indication: PAIN
  14. PARATRAM [Concomitant]
     Active Substance: ACETAMINOPHEN\TRAMADOL HYDROCHLORIDE
     Indication: ARTHRITIS

REACTIONS (22)
  - Infectious colitis [Recovered/Resolved]
  - Gait inability [Not Recovered/Not Resolved]
  - Pain in extremity [Not Recovered/Not Resolved]
  - Rhinitis [Recovered/Resolved]
  - Vomiting [Recovered/Resolved]
  - Joint swelling [Not Recovered/Not Resolved]
  - Defaecation disorder [Recovered/Resolved]
  - Weight decreased [Recovered/Resolved]
  - Stress [Recovered/Resolved]
  - Diarrhoea [Recovered/Resolved]
  - Viral infection [Recovered/Resolved]
  - Insomnia [Not Recovered/Not Resolved]
  - Anxiety [Recovering/Resolving]
  - Peripheral swelling [Not Recovered/Not Resolved]
  - Alopecia [Recovered/Resolved]
  - Rheumatoid arthritis [Not Recovered/Not Resolved]
  - Lactose intolerance [Not Recovered/Not Resolved]
  - Colitis [Unknown]
  - Arthralgia [Not Recovered/Not Resolved]
  - Vomiting [Recovered/Resolved]
  - Lactose intolerance [Recovered/Resolved]
  - Weight decreased [Recovered/Resolved]

NARRATIVE: CASE EVENT DATE: 201710
